FAERS Safety Report 8981699 (Version 1)
Quarter: 2012Q4

REPORT INFORMATION
  Report Type: 
  Country: US (occurrence: US)
  Receive Date: 20121223
  Receipt Date: 20121223
  Transmission Date: 20130627
  Serious: Yes (Other)
  Sender: FDA-Public Use
  Company Number: US-BAYER-2012-134531

PATIENT
  Age: 72 Year
  Sex: Male
  Weight: 120.2 kg

DRUGS (8)
  1. XARELTO [Suspect]
     Indication: ATRIAL FIBRILLATION
     Dosage: 20 mg, QD
     Route: 048
     Dates: start: 20120901
  2. XARELTO [Suspect]
     Indication: CEREBROVASCULAR ACCIDENT PROPHYLAXIS
  3. AMIODARONE [Suspect]
     Indication: ATRIAL FIBRILLATION
     Dosage: 200 mg, QD
     Route: 048
     Dates: start: 20120928
  4. ALL OTHER THERAPEUTIC PRODUCTS [Suspect]
     Indication: ATRIAL FIBRILLATION
     Route: 065
  5. ACETYLSALICYLIC ACID (} 100 MG) [Suspect]
     Indication: ANTICOAGULANT THERAPY
     Dosage: 325 mg, QD
     Route: 048
     Dates: start: 1990
  6. PLAVIX [Suspect]
     Indication: STENT PLACEMENT
     Dosage: 75 mg, QD
     Route: 048
     Dates: start: 20120807
  7. METFORMIN [Concomitant]
     Indication: DIABETES
     Dosage: 1000 mg, BID
     Route: 048
     Dates: start: 20120101
  8. METOPROLOL [Concomitant]
     Indication: BLOOD PRESSURE ABNORMAL
     Dosage: 50 mg, QD
     Route: 048

REACTIONS (9)
  - Haemorrhage [Recovered/Resolved]
  - Blood blister [Not Recovered/Not Resolved]
  - Dysgeusia [Not Recovered/Not Resolved]
  - Laceration [Recovered/Resolved]
  - Decreased appetite [Not Recovered/Not Resolved]
  - Nausea [Not Recovered/Not Resolved]
  - Scab [Unknown]
  - Insomnia [Recovered/Resolved]
  - Scratch [Recovered/Resolved]
